FAERS Safety Report 6724098-0 (Version None)
Quarter: 2010Q2

REPORT INFORMATION
  Report Type: 
  Country: None (occurrence: None)
  Receive Date: 20100513
  Receipt Date: 20100505
  Transmission Date: 20101027
  Serious: Yes (Other)
  Sender: FDA-Public Use
  Company Number: FI-ROCHE-700366

PATIENT

DRUGS (2)
  1. AVASTIN [Suspect]
     Indication: LUNG CANCER METASTATIC
     Dosage: DRUG: PREDNISON
     Route: 042
     Dates: start: 20100329, end: 20100329
  2. PREDNISONE [Concomitant]
     Indication: PNEUMOPERICARDIUM
     Dates: start: 20030101

REACTIONS (2)
  - PULMONARY EMBOLISM [None]
  - PULMONARY FIBROSIS [None]
